FAERS Safety Report 22220829 (Version 4)
Quarter: 2023Q4

REPORT INFORMATION
  Report Type: Report from Study
  Country: IL (occurrence: IL)
  Receive Date: 20230418
  Receipt Date: 20231120
  Transmission Date: 20240110
  Serious: Yes (Other)
  Sender: FDA-Public Use
  Company Number: IL-JNJFOC-20230407392

PATIENT
  Age: 67 Year
  Sex: Female

DRUGS (8)
  1. ESKETAMINE [Suspect]
     Active Substance: ESKETAMINE
     Indication: Depression
     Dosage: 1 DEVICE
     Dates: start: 20220919, end: 20220919
  2. ESKETAMINE [Suspect]
     Active Substance: ESKETAMINE
     Dosage: 2 DEVICE
     Dates: start: 20220921, end: 20220921
  3. ESKETAMINE [Suspect]
     Active Substance: ESKETAMINE
     Dosage: 3 DEVICE
     Dates: start: 20220928, end: 20220928
  4. ESKETAMINE [Suspect]
     Active Substance: ESKETAMINE
     Dosage: 2 DEVICE
     Dates: start: 20221003, end: 20221003
  5. ESKETAMINE [Suspect]
     Active Substance: ESKETAMINE
     Dosage: 1 DEVICE
     Dates: start: 20221009, end: 20221009
  6. ESKETAMINE [Suspect]
     Active Substance: ESKETAMINE
     Dosage: 2 DEVICE; 9 DOSES
     Dates: start: 20221012, end: 20221109
  7. ESKETAMINE [Suspect]
     Active Substance: ESKETAMINE
     Dosage: 3 DEVICES; 6 DOSES
     Dates: start: 20221114, end: 20221130
  8. ESKETAMINE [Suspect]
     Active Substance: ESKETAMINE
     Dosage: 2 DEVICES; 34 DOSES
     Dates: start: 20221205, end: 20230413

REACTIONS (2)
  - Pneumonia [Recovered/Resolved]
  - Hyperhidrosis [Recovered/Resolved]

NARRATIVE: CASE EVENT DATE: 20230327
